FAERS Safety Report 5484691-2 (Version None)
Quarter: 2007Q4

REPORT INFORMATION
  Report Type: 
  Country: None (occurrence: None)
  Receive Date: 20071010
  Receipt Date: 20070927
  Transmission Date: 20080405
  Serious: Yes (Other)
  Sender: FDA-Public Use
  Company Number: 019030

PATIENT
  Age: 15 Year
  Sex: Male

DRUGS (1)
  1. CLARAVIS [Suspect]
     Dosage: ORAL
     Route: 048
     Dates: start: 20070419

REACTIONS (3)
  - EDUCATIONAL PROBLEM [None]
  - MOOD ALTERED [None]
  - SUICIDAL IDEATION [None]
